FAERS Safety Report 11282231 (Version 1)
Quarter: 2015Q3

REPORT INFORMATION
  Report Type: Report from Study
  Country: BR (occurrence: BR)
  Receive Date: 20150720
  Receipt Date: 20150720
  Transmission Date: 20151125
  Serious: Yes (Other)
  Sender: FDA-Public Use
  Company Number: BR-ROCHE-1608253

PATIENT
  Age: 53 Year
  Sex: Female
  Weight: 41 kg

DRUGS (4)
  1. METICORTEN [Concomitant]
     Active Substance: PREDNISONE
  2. VIVACOR (BRAZIL) [Concomitant]
  3. LABIRIN [Concomitant]
     Active Substance: BETAHISTINE
  4. MABTHERA [Suspect]
     Active Substance: RITUXIMAB
     Indication: RHEUMATOID ARTHRITIS
     Route: 042
     Dates: start: 20140509

REACTIONS (4)
  - Dysuria [Unknown]
  - Sinusitis [Unknown]
  - Catarrh [Unknown]
  - Body height decreased [Not Recovered/Not Resolved]

NARRATIVE: CASE EVENT DATE: 201504
